FAERS Safety Report 6285393-5 (Version None)
Quarter: 2009Q3

REPORT INFORMATION
  Report Type: 
  Country: None (occurrence: None)
  Receive Date: 20090727
  Receipt Date: 20090717
  Transmission Date: 20100115
  Serious: No
  Sender: FDA-Public Use
  Company Number: GB-EISAI INC.-E2090-00742-SPO-GB

PATIENT
  Age: 44 Year
  Sex: Male
  Weight: 62 kg

DRUGS (6)
  1. ZONEGRAN [Suspect]
     Indication: EPILEPSY
     Route: 048
     Dates: start: 20090514, end: 20090614
  2. TEGRETOL [Suspect]
     Route: 048
     Dates: start: 19940101
  3. KEPPRA [Suspect]
     Dosage: 250MG IN AM, 375MG IN PM
     Route: 048
     Dates: start: 19980101
  4. KEPPRA [Suspect]
     Route: 048
  5. LOPERAMIDE HYDROCHLORIDE [Suspect]
     Route: 048
  6. CHINESE MEDICINE [Concomitant]

REACTIONS (5)
  - ANXIETY [None]
  - DIARRHOEA [None]
  - DRUG INTERACTION [None]
  - GRAND MAL CONVULSION [None]
  - PARAESTHESIA [None]
